FAERS Safety Report 8984930 (Version 1)
Quarter: 2012Q4

REPORT INFORMATION
  Report Type: 
  Country: US (occurrence: US)
  Receive Date: 20121226
  Receipt Date: 20121226
  Transmission Date: 20130627
  Serious: No
  Sender: FDA-Public Use
  Company Number: US-BAYER-2012-129745

PATIENT
  Sex: Female

DRUGS (1)
  1. AVELOX [Suspect]
     Dosage: 400 mg, QD
     Route: 048
     Dates: start: 20121205, end: 20121205

REACTIONS (2)
  - Oral mucosal blistering [None]
  - Blister [None]
